FAERS Safety Report 5634868-8 (Version None)
Quarter: 2008Q1

REPORT INFORMATION
  Report Type: 
  Country: None (occurrence: None)
  Receive Date: 20080131
  Receipt Date: 20071024
  Transmission Date: 20080703
  Serious: Yes (Other)
  Sender: FDA-Public Use
  Company Number: PHEH2007US12190

PATIENT
  Age: 72 Year
  Sex: Female

DRUGS (1)
  1. TEKTURNA [Suspect]
     Indication: HYPERTENSION
     Dosage: 150 MG/DAILY, ORAL
     Route: 048
     Dates: start: 20070822, end: 20070906

REACTIONS (9)
  - ARTHRALGIA [None]
  - CHEST PAIN [None]
  - EYELID OEDEMA [None]
  - JOINT STIFFNESS [None]
  - JOINT SWELLING [None]
  - MUSCULOSKELETAL STIFFNESS [None]
  - OEDEMA PERIPHERAL [None]
  - PAIN IN EXTREMITY [None]
  - PERIORBITAL OEDEMA [None]
